FAERS Safety Report 6540214-8 (Version None)
Quarter: 2010Q1

REPORT INFORMATION
  Report Type: 
  Country: None (occurrence: None)
  Receive Date: 20100115
  Receipt Date: 20100106
  Transmission Date: 20100710
  Serious: Yes (Hospitalization, Other)
  Sender: FDA-Public Use
  Company Number: US-CELGENEUS-163-21880-10010319

PATIENT
  Sex: Female

DRUGS (2)
  1. REVLIMID [Suspect]
     Indication: MULTIPLE MYELOMA
     Route: 048
     Dates: start: 20090901
  2. REVLIMID [Suspect]
     Route: 048
     Dates: start: 20090301, end: 20090801

REACTIONS (7)
  - FALL [None]
  - HALLUCINATION [None]
  - PAIN [None]
  - PNEUMONIA [None]
  - RED BLOOD CELL COUNT DECREASED [None]
  - RESPIRATORY SYNCYTIAL VIRUS INFECTION [None]
  - WHITE BLOOD CELL COUNT DECREASED [None]
